FAERS Safety Report 6399617-7 (Version None)
Quarter: 2009Q4

REPORT INFORMATION
  Report Type: 
  Country: None (occurrence: None)
  Receive Date: 20091014
  Receipt Date: 20091005
  Transmission Date: 20100525
  Serious: Yes (Other)
  Sender: FDA-Public Use
  Company Number: US-WYE-H11406409

PATIENT
  Sex: Male
  Weight: 86.26 kg

DRUGS (9)
  1. EFFEXOR XR [Suspect]
     Indication: DEPRESSION
     Route: 048
     Dates: start: 20080101
  2. EFFEXOR XR [Interacting]
     Indication: ANXIETY
  3. TOPROL-XL [Concomitant]
     Indication: HYPERTENSION
     Dosage: UNKNOWN
  4. XANAX [Concomitant]
     Indication: ANXIETY
     Dosage: 0.25 MG AS NEEDED
  5. CYANOCOBALAMIN [Concomitant]
     Dosage: UNKNOWN
  6. ACETYLSALICYLIC ACID [Concomitant]
     Dosage: UNKNOWN
  7. ZOLPIDEM TARTRATE [Interacting]
     Dosage: UNKNOWN
     Dates: start: 20090401, end: 20090501
  8. XANAX [Concomitant]
     Dosage: UNKNOWN
  9. ASCORBIC ACID/ERGOCALCIFEROL/FOLIC ACID/NICOTINAMIDE/PANTHENOL/RETINOL [Concomitant]
     Dosage: UNKNOWN

REACTIONS (4)
  - DRUG INTERACTION [None]
  - HALLUCINATION [None]
  - HOMICIDAL IDEATION [None]
  - PARANOIA [None]
